FAERS Safety Report 5812007-8 (Version None)
Quarter: 2008Q3

REPORT INFORMATION
  Report Type: 
  Country: None (occurrence: None)
  Receive Date: 20080716
  Receipt Date: 20080715
  Transmission Date: 20090109
  Serious: Yes (Hospitalization)
  Sender: FDA-Public Use
  Company Number: US-ASTRAZENECA-2008UW14115

PATIENT
  Age: 74 Year
  Sex: Female
  Weight: 63.5 kg

DRUGS (4)
  1. NEXIUM [Suspect]
     Route: 048
  2. PULMICORT FLEXHALER [Concomitant]
     Dosage: 2 PUFF BID
  3. PULMICORT FLEXHALER [Concomitant]
     Dosage: 1 PUFF BID
  4. ALBUTEROL [Concomitant]
     Dosage: 2 PUFFS BID

REACTIONS (3)
  - DRUG HYPERSENSITIVITY [None]
  - DYSARTHRIA [None]
  - RASH [None]
